FAERS Safety Report 16189997 (Version 1)
Quarter: 2019Q2

REPORT INFORMATION
  Report Type: Spontaneous
  Country: US (occurrence: US)
  Receive Date: 20190411
  Receipt Date: 20190411
  Transmission Date: 20190711
  Serious: No
  Sender: FDA-Public Use
  Company Number: None

PATIENT
  Age: 21 Year
  Sex: Female
  Weight: 65.77 kg

DRUGS (1)
  1. NEXPLANON [Suspect]
     Active Substance: ETONOGESTREL
     Dates: start: 20171001, end: 20171215

REACTIONS (8)
  - Asthenia [None]
  - Weight increased [None]
  - Vomiting [None]
  - Blood iron decreased [None]
  - Acne [None]
  - Complication of device removal [None]
  - Menstrual disorder [None]
  - Food craving [None]

NARRATIVE: CASE EVENT DATE: 20171215
